FAERS Safety Report 15678025 (Version 3)
Quarter: 2019Q2

REPORT INFORMATION
  Report Type: Spontaneous
  Country: ES (occurrence: ES)
  Receive Date: 20181130
  Receipt Date: 20190617
  Transmission Date: 20190711
  Serious: Yes (Life-Threatening, Hospitalization, Other)
  Sender: FDA-Public Use
  Company Number: ES-MYLANLABS-2018M1089717

PATIENT
  Age: 25 Year
  Sex: Male

DRUGS (4)
  1. ARIPIPRAZOLE. [Suspect]
     Active Substance: ARIPIPRAZOLE
     Indication: DELUSION
     Dosage: 10 MG, QD
     Route: 048
  2. OLANZAPINE. [Suspect]
     Active Substance: OLANZAPINE
     Indication: ACUTE PSYCHOSIS
     Dosage: 10 MILLIGRAM, QD
  3. PALIPERIDONE. [Suspect]
     Active Substance: PALIPERIDONE
     Indication: PSYCHOTIC DISORDER
     Dosage: 12 MG, UNK
     Route: 065
  4. CLOZAPINE. [Suspect]
     Active Substance: CLOZAPINE
     Indication: PSYCHOTIC DISORDER
     Dosage: 100 MG, UNK
     Route: 065

REACTIONS (12)
  - Pallor [Recovering/Resolving]
  - Posture abnormal [Recovering/Resolving]
  - Syncope [Recovering/Resolving]
  - Orthostatic hypotension [Recovering/Resolving]
  - Bradykinesia [Recovering/Resolving]
  - Neuroleptic malignant syndrome [Recovering/Resolving]
  - Tremor [Recovering/Resolving]
  - Sedation complication [Recovering/Resolving]
  - Hallucination, visual [Recovering/Resolving]
  - Somnolence [Unknown]
  - Akathisia [Recovered/Resolved]
  - Abnormal behaviour [Recovering/Resolving]
